FAERS Safety Report 24466447 (Version 1)
Quarter: 2024Q4

REPORT INFORMATION
  Report Type: Report from Study
  Country: US (occurrence: US)
  Receive Date: 20241018
  Receipt Date: 20241018
  Transmission Date: 20250115
  Serious: No
  Sender: ROCHE
  Company Number: US-ROCHE-3540545

PATIENT
  Age: 62 Year
  Sex: Male

DRUGS (15)
  1. XOLAIR [Suspect]
     Active Substance: OMALIZUMAB
     Indication: Asthma
     Route: 065
  2. XOLAIR [Suspect]
     Active Substance: OMALIZUMAB
  3. PROVENTIL HFA [Concomitant]
     Active Substance: ALBUTEROL SULFATE
  4. NORVASC [Concomitant]
     Active Substance: AMLODIPINE BESYLATE
  5. KLONOPIN [Concomitant]
     Active Substance: CLONAZEPAM
  6. TRELEGY ELLIPTA [Concomitant]
     Active Substance: FLUTICASONE FUROATE\UMECLIDINIUM BROMIDE\VILANTEROL TRIFENATATE
     Dosage: INHALE 1 PUFF ONE TIME DAILY FOR 90 DAYS
  7. LOPID [Concomitant]
     Active Substance: GEMFIBROZIL
  8. COZAAR [Concomitant]
     Active Substance: LOSARTAN POTASSIUM
  9. SINGULAIR [Concomitant]
     Active Substance: MONTELUKAST SODIUM
     Dosage: FOR 90 DAYS
  10. NAPROSYN [Concomitant]
     Active Substance: NAPROXEN
  11. IMITREX [Concomitant]
     Active Substance: SUMATRIPTAN SUCCINATE
     Route: 048
  12. ULTRAM [Concomitant]
     Active Substance: TRAMADOL HYDROCHLORIDE
  13. ZITHROMAX [Concomitant]
     Active Substance: AZITHROMYCIN DIHYDRATE
  14. CELEBREX [Concomitant]
     Active Substance: CELECOXIB
  15. DELTASONE [Concomitant]
     Active Substance: PREDNISONE

REACTIONS (16)
  - Cough [Unknown]
  - Wheezing [Unknown]
  - Chest discomfort [Unknown]
  - Dyspnoea [Unknown]
  - Productive cough [Unknown]
  - Red blood cell count decreased [Unknown]
  - Mean cell haemoglobin increased [Unknown]
  - Blood glucose increased [Unknown]
  - Blood urea increased [Unknown]
  - Blood albumin decreased [Unknown]
  - Blood creatinine decreased [Unknown]
  - Neutrophil count increased [Unknown]
  - Lymphocyte count decreased [Unknown]
  - Eosinophil count increased [Unknown]
  - Platelet count increased [Unknown]
  - Granulocyte count increased [Unknown]
